FAERS Safety Report 7230372-4 (Version None)
Quarter: 2011Q1

REPORT INFORMATION
  Report Type: 
  Country: None (occurrence: None)
  Receive Date: 20110118
  Receipt Date: 20110109
  Transmission Date: 20110831
  Serious: Yes (Hospitalization)
  Sender: FDA-Public Use
  Company Number: CN-JNJFOC-20110102155

PATIENT
  Age: 29 Year
  Sex: Male

DRUGS (3)
  1. METRONIDAZOLE [Concomitant]
  2. INFLIXIMAB [Suspect]
     Indication: CROHN'S DISEASE
     Dosage: W0,2,6,8
     Route: 042
  3. CIPROFLOXACIN [Concomitant]

REACTIONS (1)
  - HYPOKALAEMIA [None]
